FAERS Safety Report 8473213-X (Version None)
Quarter: 2012Q2

REPORT INFORMATION
  Report Type: 
  Country: None (occurrence: None)
  Receive Date: 20120627
  Receipt Date: 20120618
  Transmission Date: 20120825
  Serious: Yes (Hospitalization, Other)
  Sender: FDA-Public Use
  Company Number: US-ELI_LILLY_AND_COMPANY-US201206005947

PATIENT
  Sex: Female
  Weight: 112.93 kg

DRUGS (2)
  1. BYDUREON [Suspect]
     Indication: TYPE 2 DIABETES MELLITUS
     Dosage: 2 MG, WEEKLY (1/W)
     Route: 058
     Dates: start: 20120518, end: 20120527
  2. METFORMIN HCL [Concomitant]
     Indication: TYPE 2 DIABETES MELLITUS
     Dosage: 1000 MG, BID
     Route: 048
     Dates: start: 20040101

REACTIONS (6)
  - URTICARIA [None]
  - INJECTION SITE ERYTHEMA [None]
  - LIP SWELLING [None]
  - DYSPNOEA [None]
  - PRURITUS [None]
  - DIZZINESS [None]
